FAERS Safety Report 12355401 (Version 3)
Quarter: 2016Q2

REPORT INFORMATION
  Report Type: Spontaneous
  Country: US (occurrence: US)
  Receive Date: 20160511
  Receipt Date: 20160602
  Transmission Date: 20160815
  Serious: Yes (Death, Life-Threatening, Hospitalization, Other)
  Sender: FDA-Public Use
  Company Number: US-MDT-ADR-2016-00848

PATIENT
  Age: 57 Year
  Sex: Female

DRUGS (4)
  1. SINGULAIR [Suspect]
     Active Substance: MONTELUKAST SODIUM
     Route: 048
  2. LASIX [Suspect]
     Active Substance: FUROSEMIDE
     Route: 048
  3. ANTIBIOTIC [Suspect]
     Active Substance: UNSPECIFIED INGREDIENT
     Route: 048
  4. LIORESAL [Suspect]
     Active Substance: BACLOFEN
     Dosage: 138.4 MCG/DAY
     Route: 037

REACTIONS (9)
  - Lung disorder [Unknown]
  - Mental status changes [Recovered/Resolved]
  - Pneumonia [Unknown]
  - Respiratory failure [Fatal]
  - Body temperature decreased [Recovered/Resolved]
  - Hypotonia [Recovered/Resolved]
  - Sepsis [Fatal]
  - Respiratory tract infection [Fatal]
  - Aspiration [Unknown]

NARRATIVE: CASE EVENT DATE: 201512
